FAERS Safety Report 22517689 (Version 1)
Quarter: 2023Q2

REPORT INFORMATION
  Report Type: Spontaneous
  Country: US (occurrence: US)
  Receive Date: 20230604
  Receipt Date: 20230604
  Transmission Date: 20230722
  Serious: Yes (Death)
  Sender: FDA-Public Use
  Company Number: US-CTI BIOPHARMA-2023US03690

PATIENT

DRUGS (14)
  1. VONJO [Suspect]
     Active Substance: PACRITINIB
     Indication: Essential thrombocythaemia
     Dosage: 200 MG, BID
     Route: 048
  2. ARICEPT [Concomitant]
     Active Substance: DONEPEZIL HYDROCHLORIDE
  3. BACLOFEN [Concomitant]
     Active Substance: BACLOFEN
  4. GABAPENTIN [Concomitant]
     Active Substance: GABAPENTIN
  5. LORAZEPAM [Concomitant]
     Active Substance: LORAZEPAM
  6. LIDOCAINE [Concomitant]
     Active Substance: LIDOCAINE
  7. MELATONIN [Concomitant]
     Active Substance: MELATONIN
  8. METOPROLOL [Concomitant]
     Active Substance: METOPROLOL
  9. MIRTAZAPINE [Concomitant]
     Active Substance: MIRTAZAPINE
  10. VITAMINS NOS [Concomitant]
     Active Substance: VITAMINS
  11. NAMENDA [Concomitant]
     Active Substance: MEMANTINE HYDROCHLORIDE
  12. NORCO [Concomitant]
     Active Substance: ACETAMINOPHEN\HYDROCODONE BITARTRATE
  13. PANTOPRAZOLE [Concomitant]
     Active Substance: PANTOPRAZOLE
  14. ERYTHROPOIETIN [Concomitant]
     Active Substance: ERYTHROPOIETIN

REACTIONS (1)
  - Death [Fatal]
